FAERS Safety Report 9854777 (Version 6)
Quarter: 2014Q3

REPORT INFORMATION
  Report Type: Spontaneous
  Country: US (occurrence: US)
  Receive Date: 20140130
  Receipt Date: 20140902
  Transmission Date: 20150326
  Serious: No
  Sender: FDA-Public Use
  Company Number: US-PFIZER INC-2014026956

PATIENT
  Age: 63 Year
  Sex: Female

DRUGS (3)
  1. CELEBREX [Suspect]
     Active Substance: CELECOXIB
     Dosage: 200 MG EVERY DAY AS NEEDED
     Route: 048
  2. TYLENOL [Concomitant]
     Active Substance: ACETAMINOPHEN
     Dosage: AS NEEDED
  3. ULTRAM [Concomitant]
     Active Substance: TRAMADOL HYDROCHLORIDE
     Dosage: 50 MG EVERY 6 HOURS AS NEEDED
     Route: 048

REACTIONS (5)
  - Feeling abnormal [Unknown]
  - Oedema peripheral [Recovering/Resolving]
  - Pain [Unknown]
  - Deep vein thrombosis [Unknown]
  - Intentional product misuse [Unknown]
